FAERS Safety Report 11615134 (Version 2)
Quarter: 2015Q4

REPORT INFORMATION
  Report Type: Spontaneous
  Country: JP (occurrence: None)
  Receive Date: 20151009
  Receipt Date: 20151116
  Transmission Date: 20160304
  Serious: Yes (Death, Other)
  Sender: FDA-Public Use
  Company Number: JP-MDT-ADR-2015-01925

PATIENT
  Age: 70 Year
  Sex: Male

DRUGS (1)
  1. GABALON INTRATHECAL [Suspect]
     Active Substance: BACLOFEN
     Indication: SPINAL CORD INJURY
     Dosage: 150 MCG/DAY

REACTIONS (1)
  - Death [None]
